FAERS Safety Report 21085117 (Version 1)
Quarter: 2022Q3

REPORT INFORMATION
  Report Type: Spontaneous
  Country: US (occurrence: US)
  Receive Date: 20220714
  Receipt Date: 20220714
  Transmission Date: 20221027
  Serious: No
  Sender: FDA-Public Use
  Company Number: US-SA-SAC20220713000081

PATIENT
  Age: 60 Year
  Sex: Female

DRUGS (12)
  1. DUPIXENT [Suspect]
     Active Substance: DUPILUMAB
     Indication: Dermatitis atopic
     Dosage: 300 MG, QOW
     Route: 058
     Dates: end: 20220514
  2. ALMOTRIPTAN [Concomitant]
     Active Substance: ALMOTRIPTAN
     Dosage: 6.25MG
  3. BOTOX [Concomitant]
     Active Substance: ONABOTULINUMTOXINA
     Dosage: 100 UNIT
  4. EMGALITY [Concomitant]
     Active Substance: GALCANEZUMAB-GNLM
     Dosage: 30 SOS 100MG/ML
  5. KETOCONAZOLE [Concomitant]
     Active Substance: KETOCONAZOLE
     Dosage: 2 %
  6. LACTASE [Concomitant]
     Active Substance: LACTASE
     Dosage: 9000 U
  7. LEXAPRO [Concomitant]
     Active Substance: ESCITALOPRAM OXALATE
     Dosage: 20
  8. LINZESS [Concomitant]
     Active Substance: LINACLOTIDE
     Dosage: 290 MCG
  9. MELOXICAM [Concomitant]
     Active Substance: MELOXICAM
     Dosage: 15
  10. NALTREXONE [Concomitant]
     Active Substance: NALTREXONE
     Dosage: 50
  11. OMEPRAZOLE [Concomitant]
     Active Substance: OMEPRAZOLE
     Dosage: 40
  12. UBRELVY [Concomitant]
     Active Substance: UBROGEPANT
     Dosage: 50MG

REACTIONS (1)
  - Oral herpes [Not Recovered/Not Resolved]
